FAERS Safety Report 17999456 (Version 3)
Quarter: 2020Q3

REPORT INFORMATION
  Report Type: Spontaneous
  Country: JP (occurrence: JP)
  Receive Date: 20200709
  Receipt Date: 20200807
  Transmission Date: 20201103
  Serious: Yes (Disabling, Other)
  Sender: FDA-Public Use
  Company Number: NVSJ2020JP006160

PATIENT
  Age: 73 Year
  Sex: Male

DRUGS (5)
  1. BEOVU [Suspect]
     Active Substance: BROLUCIZUMAB-DBLL
     Indication: AGE-RELATED MACULAR DEGENERATION
     Dosage: 0.05 ML
     Route: 031
     Dates: start: 20200609
  2. EYLEA [Suspect]
     Active Substance: AFLIBERCEPT
     Dosage: UNK UNK, Q2MO
     Route: 047
     Dates: start: 20200218
  3. EYLEA [Suspect]
     Active Substance: AFLIBERCEPT
     Dosage: UNK UNK, Q2MO
     Route: 047
     Dates: start: 20200414
  4. EYLEA [Suspect]
     Active Substance: AFLIBERCEPT
     Indication: AGE-RELATED MACULAR DEGENERATION
     Dosage: UNK UNK, THREE TIMES A MONTH, Q2MO
     Route: 047
     Dates: start: 201606
  5. EYLEA [Suspect]
     Active Substance: AFLIBERCEPT
     Dosage: UNK
     Route: 047
     Dates: start: 20190605

REACTIONS (10)
  - Visual impairment [Unknown]
  - Eye inflammation [Recovered/Resolved]
  - Uveitis [Recovered/Resolved]
  - Intraocular pressure increased [Unknown]
  - Retinal artery occlusion [Recovered/Resolved with Sequelae]
  - Retinal vasculitis [Recovered/Resolved]
  - Conjunctival hyperaemia [Recovering/Resolving]
  - Vitreous opacities [Unknown]
  - Retinal ischaemia [Unknown]
  - Retinal perivascular sheathing [Unknown]

NARRATIVE: CASE EVENT DATE: 20200623
